FAERS Safety Report 7267213-5 (Version None)
Quarter: 2011Q1

REPORT INFORMATION
  Report Type: 
  Country: None (occurrence: None)
  Receive Date: 20110201
  Receipt Date: 20110124
  Transmission Date: 20110831
  Serious: Yes (Other)
  Sender: FDA-Public Use
  Company Number: FR-BAYER-2010-003237

PATIENT
  Sex: Female
  Weight: 81.179 kg

DRUGS (1)
  1. MIRENA [Suspect]
     Indication: PRODUCT USED FOR UNKNOWN INDICATION
     Dosage: 20 ?G, CONT
     Route: 015
     Dates: start: 20100122, end: 20101112

REACTIONS (7)
  - ENDOMETRIAL HYPERPLASIA [None]
  - VOMITING [None]
  - NAUSEA [None]
  - ABDOMINAL DISCOMFORT [None]
  - MENORRHAGIA [None]
  - METRORRHAGIA [None]
  - ACNE [None]
